FAERS Safety Report 7086385-9 (Version None)
Quarter: 2010Q4

REPORT INFORMATION
  Report Type: 
  Country: None (occurrence: None)
  Receive Date: 20101105
  Receipt Date: 20101028
  Transmission Date: 20110411
  Serious: Yes (Hospitalization, Other)
  Sender: FDA-Public Use
  Company Number: NL-GILEAD-E2B_00000749

PATIENT
  Sex: Male
  Weight: 98 kg

DRUGS (10)
  1. AMBRISENTAN [Suspect]
     Indication: PULMONARY ARTERIAL HYPERTENSION
     Dosage: 5MG PER DAY
     Route: 048
     Dates: start: 20091216, end: 20100204
  2. AMBRISENTAN [Suspect]
     Dates: end: 20100209
  3. SILDENAFIL CITRATE [Concomitant]
     Indication: PULMONARY HYPERTENSION
     Dosage: 60MG PER DAY
     Route: 048
     Dates: start: 20090801
  4. LANOXIN [Concomitant]
  5. VERAPAMIL [Concomitant]
  6. METOPROLOL [Concomitant]
  7. HUMALOG [Concomitant]
  8. FUROSEMIDE [Concomitant]
  9. SPIRONOLACTONE [Concomitant]
  10. ETALPHA [Concomitant]

REACTIONS (3)
  - FLUID RETENTION [None]
  - LOCALISED OEDEMA [None]
  - RENAL IMPAIRMENT [None]
